FAERS Safety Report 5194439-7 (Version None)
Quarter: 2006Q4

REPORT INFORMATION
  Report Type: 
  Country: None (occurrence: None)
  Receive Date: 20061222
  Receipt Date: 20061218
  Transmission Date: 20070319
  Serious: Yes (Hospitalization)
  Sender: FDA-Public Use
  Company Number: 238263K06USA

PATIENT
  Age: 65 Year
  Sex: Female

DRUGS (2)
  1. REBIF [Suspect]
     Indication: MULTIPLE SCLEROSIS
     Dosage: 44 MCG, SUBCUTANEOUS
     Route: 058
     Dates: start: 20040615
  2. COUMADIN [Concomitant]

REACTIONS (6)
  - ASPIRATION [None]
  - DYSPHAGIA [None]
  - INFECTION [None]
  - PYREXIA [None]
  - SOMNOLENCE [None]
  - URINARY TRACT INFECTION [None]
